FAERS Safety Report 7069962-0 (Version None)
Quarter: 2010Q4

REPORT INFORMATION
  Report Type: 
  Country: None (occurrence: None)
  Receive Date: 20101028
  Receipt Date: 20100728
  Transmission Date: 20110411
  Serious: No
  Sender: FDA-Public Use
  Company Number: US-WYE-H16737610

PATIENT
  Sex: Female
  Weight: 68.1 kg

DRUGS (2)
  1. PROTONIX [Suspect]
     Indication: GASTROOESOPHAGEAL REFLUX DISEASE
     Dosage: UNKNOWN
     Dates: start: 20080101, end: 20080101
  2. PROTONIX [Suspect]
     Indication: COUGH
     Dosage: UNKNOWN
     Dates: start: 20090101, end: 20090101

REACTIONS (1)
  - DRUG INEFFECTIVE [None]
